FAERS Safety Report 9485347 (Version 1)
Quarter: 2013Q3

REPORT INFORMATION
  Report Type: Spontaneous
  Country: US (occurrence: US)
  Receive Date: 20130828
  Receipt Date: 20130828
  Transmission Date: 20140515
  Serious: Yes (Other)
  Sender: FDA-Public Use
  Company Number: US-SANOFI-AVENTIS-2013SA085262

PATIENT
  Age: 45 Year
  Sex: Female

DRUGS (2)
  1. LOVENOX [Suspect]
     Route: 065
  2. COUMADIN [Suspect]
     Route: 065

REACTIONS (4)
  - Lower limb fracture [Not Recovered/Not Resolved]
  - Pain in extremity [Not Recovered/Not Resolved]
  - Local swelling [Not Recovered/Not Resolved]
  - Thrombosis [Not Recovered/Not Resolved]
